FAERS Safety Report 11067530 (Version 1)
Quarter: 2015Q2

REPORT INFORMATION
  Report Type: Spontaneous
  Country: US (occurrence: US)
  Receive Date: 20150427
  Receipt Date: 20150427
  Transmission Date: 20150821
  Serious: No
  Sender: FDA-Public Use
  Company Number: US-TEVA-486716USA

PATIENT
  Sex: Female

DRUGS (1)
  1. CEFALEXIN [Suspect]
     Active Substance: CEPHALEXIN

REACTIONS (3)
  - Abdominal pain upper [Unknown]
  - Wrong technique in drug usage process [Unknown]
  - Dyspepsia [Unknown]
